FAERS Safety Report 20777554 (Version 1)
Quarter: 2022Q2

REPORT INFORMATION
  Report Type: Spontaneous
  Country: CN (occurrence: None)
  Receive Date: 20220503
  Receipt Date: 20220503
  Transmission Date: 20220720
  Serious: Yes (Life-Threatening, Hospitalization, Other)
  Sender: FDA-Public Use
  Company Number: CN-ROCHE-3086857

PATIENT
  Age: 25 Year
  Sex: Female

DRUGS (18)
  1. MABTHERA [Suspect]
     Active Substance: RITUXIMAB
     Indication: B-cell lymphoma
     Dosage: R-CTOP FOR 1 CYCLE
     Route: 065
     Dates: start: 2022
  2. MABTHERA [Suspect]
     Active Substance: RITUXIMAB
     Dosage: R-EPOCH FOR 1 CYCLE
     Route: 065
     Dates: start: 2022
  3. MABTHERA [Suspect]
     Active Substance: RITUXIMAB
     Dosage: PUMP INJECTION, INJECTION
     Route: 065
     Dates: start: 20220403, end: 20220403
  4. PREDNISOLONE [Suspect]
     Active Substance: PREDNISOLONE
     Indication: B-cell lymphoma
     Dosage: R-CTOP FOR 1 CYCLE
     Route: 065
     Dates: start: 2022
  5. PREDNISOLONE [Suspect]
     Active Substance: PREDNISOLONE
     Dosage: R-EPOCH FOR 1 CYCLE
     Route: 065
     Dates: start: 2022
  6. PREDNISOLONE [Suspect]
     Active Substance: PREDNISOLONE
     Route: 041
     Dates: start: 20220404, end: 20220404
  7. PIRARUBICIN HYDROCHLORIDE [Suspect]
     Active Substance: PIRARUBICIN HYDROCHLORIDE
     Indication: B-cell lymphoma
     Dosage: R-CTOP FOR 1 CYCLE
     Route: 065
     Dates: start: 2022
  8. PIRARUBICIN HYDROCHLORIDE [Suspect]
     Active Substance: PIRARUBICIN HYDROCHLORIDE
     Dosage: R-EPOCH FOR 1 CYCLE
     Route: 065
     Dates: start: 2022
  9. PIRARUBICIN HYDROCHLORIDE [Suspect]
     Active Substance: PIRARUBICIN HYDROCHLORIDE
     Dosage: POWDER INJECTION
     Route: 041
     Dates: start: 20220404, end: 20220408
  10. VINDESINE SULFATE [Suspect]
     Active Substance: VINDESINE SULFATE
     Indication: B-cell lymphoma
     Dosage: R-CTOP FOR 1 CYCLE
     Route: 065
     Dates: start: 2022
  11. VINDESINE SULFATE [Suspect]
     Active Substance: VINDESINE SULFATE
     Dosage: R-EPOCH FOR 1 CYCLE
     Route: 065
     Dates: start: 2022
  12. VINDESINE SULFATE [Suspect]
     Active Substance: VINDESINE SULFATE
     Dosage: POWDER INJECTION
     Route: 041
     Dates: start: 20220404, end: 20220408
  13. ETOPOSIDE [Suspect]
     Active Substance: ETOPOSIDE
     Indication: B-cell lymphoma
     Dosage: R-EPOCH FOR 1 CYCLE
     Route: 065
     Dates: start: 2022
  14. ETOPOSIDE [Suspect]
     Active Substance: ETOPOSIDE
     Route: 041
     Dates: start: 20220404, end: 20220408
  15. ONDANSETRON HYDROCHLORIDE [Concomitant]
     Active Substance: ONDANSETRON HYDROCHLORIDE
     Dosage: ANTIEMETIC
     Route: 042
     Dates: start: 20220404, end: 20220409
  16. CYCLOPHOSPHAMIDE [Concomitant]
     Active Substance: CYCLOPHOSPHAMIDE
     Indication: B-cell lymphoma
     Dosage: R-CTOP FOR 1 CYCLE
     Dates: start: 2022
  17. CYCLOPHOSPHAMIDE [Concomitant]
     Active Substance: CYCLOPHOSPHAMIDE
     Dosage: R-EPOCH FOR 1 CYCLE
     Dates: start: 2022
  18. CYCLOPHOSPHAMIDE [Concomitant]
     Active Substance: CYCLOPHOSPHAMIDE
     Dosage: R-EPOCH DOSE REDUCED BY 20 PERCENTAGE
     Dates: start: 202204

REACTIONS (4)
  - Febrile neutropenia [Recovering/Resolving]
  - Venous thrombosis limb [Recovering/Resolving]
  - Myelosuppression [Recovering/Resolving]
  - Respiratory tract infection [Recovering/Resolving]

NARRATIVE: CASE EVENT DATE: 20220101
